FAERS Safety Report 20445482 (Version 1)
Quarter: 2022Q1

REPORT INFORMATION
  Report Type: Spontaneous
  Country: US (occurrence: None)
  Receive Date: 20220208
  Receipt Date: 20220208
  Transmission Date: 20220423
  Serious: Yes (Hospitalization, Disabling)
  Sender: FDA-Public Use
  Company Number: None

PATIENT
  Age: 43 Year
  Sex: Female

DRUGS (3)
  1. BENLYSTA [Suspect]
     Active Substance: BELIMUMAB
     Indication: Systemic lupus erythematosus
     Dosage: FREQUENCY : MONTHLY;?
     Route: 042
     Dates: start: 20210603
  2. MYCOPHENOLIC ACID [Concomitant]
  3. HYDROXYCHLOROQUINE [Concomitant]

REACTIONS (3)
  - Headache [None]
  - Ophthalmic artery aneurysm [None]
  - Inflammatory marker increased [None]

NARRATIVE: CASE EVENT DATE: 20220201
